FAERS Safety Report 8296816-4 (Version None)
Quarter: 2012Q2

REPORT INFORMATION
  Report Type: 
  Country: None (occurrence: None)
  Receive Date: 20120419
  Receipt Date: 20120410
  Transmission Date: 20120825
  Serious: Yes (Hospitalization)
  Sender: FDA-Public Use
  Company Number: IT-BRISTOL-MYERS SQUIBB COMPANY-16245136

PATIENT
  Age: 74 Year
  Sex: Female

DRUGS (10)
  1. ATORVASTATIN CALCIUM [Concomitant]
     Indication: HYPERCHOLESTEROLAEMIA
     Dosage: 1DF=1 UNIT.
  2. OMEPRAZOLE [Concomitant]
     Indication: PROPHYLAXIS AGAINST GASTROINTESTINAL ULCER
  3. METFORMIN HCL [Concomitant]
     Indication: DIABETES MELLITUS
  4. ACETYLSALICYLIC ACID SRT [Suspect]
     Dosage: INTER ON 3JUN11 AND RESTARTED
     Route: 048
     Dates: start: 20080101
  5. TAMSULOSIN HYDROCHLORIDE [Concomitant]
     Indication: BENIGN PROSTATIC HYPERPLASIA
  6. NITRODERM [Concomitant]
     Indication: MYOCARDIAL ISCHAEMIA
  7. COUMADIN [Suspect]
     Indication: ATRIAL FIBRILLATION
     Dosage: INTER ON 3JUN11 RESTARTED
     Route: 048
     Dates: start: 20080101
  8. MICARDIS [Suspect]
     Indication: HYPERTENSION
  9. LASIX [Suspect]
  10. ESKIM [Concomitant]
     Indication: HYPERTRIGLYCERIDAEMIA

REACTIONS (1)
  - ANAEMIA [None]
